FAERS Safety Report 9479770 (Version 1)
Quarter: 2013Q3

REPORT INFORMATION
  Report Type: Spontaneous
  Country: CA (occurrence: CA)
  Receive Date: 20130828
  Receipt Date: 20130828
  Transmission Date: 20140515
  Serious: Yes (Hospitalization, Other)
  Sender: FDA-Public Use
  Company Number: CA-AMGEN-CANSP2011063569

PATIENT
  Age: 13 Year
  Sex: Male

DRUGS (3)
  1. ENBREL [Suspect]
     Indication: JUVENILE IDIOPATHIC ARTHRITIS
     Dosage: 50 MG, QWK
     Route: 065
     Dates: start: 20110401, end: 20110830
  2. ARAVA [Concomitant]
  3. METHOTREXATE [Concomitant]

REACTIONS (2)
  - Retinal detachment [Recovered/Resolved]
  - Eye inflammation [Recovered/Resolved]
